FAERS Safety Report 18085583 (Version 2)
Quarter: 2020Q3

REPORT INFORMATION
  Report Type: Spontaneous
  Country: US (occurrence: US)
  Receive Date: 20200729
  Receipt Date: 20200831
  Transmission Date: 20201103
  Serious: Yes (Death, Other)
  Sender: FDA-Public Use
  Company Number: US-GILEAD-2020-0486599

PATIENT
  Age: 67 Year
  Sex: Male
  Weight: 129 kg

DRUGS (29)
  1. DEXAMETHASONE. [Concomitant]
     Active Substance: DEXAMETHASONE
     Dosage: UNK
     Dates: start: 20200714, end: 20200722
  2. METOPROLOL. [Concomitant]
     Active Substance: METOPROLOL
     Dosage: UNK
     Dates: start: 20200720, end: 20200722
  3. BUSPIRONE [Concomitant]
     Active Substance: BUSPIRONE HYDROCHLORIDE
     Indication: ANXIETY
     Dosage: 30 MG, BID
     Dates: start: 20200714, end: 20200722
  4. VENLAFAXINE [Concomitant]
     Active Substance: VENLAFAXINE HYDROCHLORIDE
     Indication: COVID-19
     Dosage: 37.5 MG, BID
     Dates: start: 20200715, end: 20200722
  5. ENOXAPARIN [Concomitant]
     Active Substance: ENOXAPARIN
     Dosage: UNK
     Dates: start: 20200714, end: 20200722
  6. CITRATE OF MAGNESIUM [Concomitant]
     Active Substance: MAGNESIUM CITRATE
     Indication: CONSTIPATION
     Dosage: 300 ML, QD
     Dates: start: 20200722, end: 20200722
  7. LORAZEPAM. [Concomitant]
     Active Substance: LORAZEPAM
     Indication: PALLIATIVE CARE
     Dosage: 2 MG
     Route: 042
     Dates: start: 20200723, end: 20200723
  8. DEXAMETHASONE. [Concomitant]
     Active Substance: DEXAMETHASONE
     Indication: COVID-19
     Dosage: 6 MG, QD
     Route: 042
     Dates: start: 20200714, end: 20200722
  9. FENTANYL. [Concomitant]
     Active Substance: FENTANYL
     Dosage: UNK
     Dates: start: 20200718, end: 20200723
  10. CHLORHEXIDINE [Concomitant]
     Active Substance: CHLORHEXIDINE
     Indication: PROPHYLAXIS
     Dosage: 15 ML, BID
     Route: 048
     Dates: start: 20200718, end: 20200722
  11. SENNA LAXATIVE AND DOCUSATE SODIUM [Concomitant]
     Indication: CONSTIPATION
     Dosage: 2 DOSAGE FORM, BID
     Route: 048
     Dates: start: 20200720, end: 20200723
  12. VANCOMYCIN [Concomitant]
     Active Substance: VANCOMYCIN
     Indication: PNEUMONIA
     Dosage: 1750 MG, Q8H
     Route: 042
     Dates: start: 20200720, end: 20200722
  13. FUROSEMIDE. [Concomitant]
     Active Substance: FUROSEMIDE
     Indication: FLUID OVERLOAD
     Dosage: 40 MG, QD
     Route: 042
     Dates: start: 20200722, end: 20200722
  14. ENOXAPARIN [Concomitant]
     Active Substance: ENOXAPARIN
     Indication: COVID-19
     Dosage: 130 MG
     Route: 058
     Dates: start: 20200714, end: 20200722
  15. OXYGEN. [Concomitant]
     Active Substance: OXYGEN
  16. INSULIN LISPRO [Concomitant]
     Active Substance: INSULIN LISPRO
     Indication: HYPERGLYCAEMIA
     Dosage: PER SCALE
     Route: 058
     Dates: start: 20200719, end: 20200722
  17. CEFEPIME [Concomitant]
     Active Substance: CEFEPIME HYDROCHLORIDE
     Indication: PNEUMONIA
     Dosage: 2 G, Q8H
     Route: 042
     Dates: start: 20200720, end: 20200723
  18. PANTOPRAZOLE [Concomitant]
     Active Substance: PANTOPRAZOLE
     Indication: PROPHYLAXIS
     Dosage: 40 MG
     Route: 042
     Dates: start: 20200720, end: 20200722
  19. MORPHINE [Concomitant]
     Active Substance: MORPHINE
     Indication: PALLIATIVE CARE
     Dosage: 4 MG
     Route: 042
     Dates: start: 20200723, end: 20200723
  20. REMDESIVIR. [Suspect]
     Active Substance: REMDESIVIR
     Dosage: 100 MG, QD
     Route: 042
     Dates: start: 20200715, end: 20200718
  21. REMDESIVIR. [Suspect]
     Active Substance: REMDESIVIR
     Indication: COVID-19
     Dosage: 200 MG, ONCE
     Route: 042
     Dates: start: 20200714, end: 20200714
  22. HYDRALAZINE [Concomitant]
     Active Substance: HYDRALAZINE HYDROCHLORIDE
     Dosage: UNK
     Dates: start: 20200722, end: 20200723
  23. ACETAMINOPHEN. [Concomitant]
     Active Substance: ACETAMINOPHEN
     Indication: PAIN
  24. PRAVASTATIN. [Concomitant]
     Active Substance: PRAVASTATIN
     Indication: HYPERLIPIDAEMIA
     Dosage: 40 MG, QD
     Dates: start: 20200714, end: 20200722
  25. LABETALOL [Concomitant]
     Active Substance: LABETALOL\LABETALOL HYDROCHLORIDE
     Dosage: UNK
     Dates: start: 20200722, end: 20200723
  26. ACETAMINOPHEN. [Concomitant]
     Active Substance: ACETAMINOPHEN
     Indication: PYREXIA
  27. PROPOFOL. [Concomitant]
     Active Substance: PROPOFOL
     Dosage: UNK
     Dates: start: 20200718, end: 20200723
  28. DILTIAZEM. [Concomitant]
     Active Substance: DILTIAZEM
     Dosage: UNK
     Dates: start: 20200714, end: 20200717
  29. PLASMA [Concomitant]
     Active Substance: HUMAN PLASMA
     Dosage: UNK
     Dates: start: 20200716, end: 20200716

REACTIONS (6)
  - Aortic dissection [Unknown]
  - Hypoxia [Unknown]
  - Death [Fatal]
  - Depressed level of consciousness [Unknown]
  - Hypertension [Unknown]
  - Tachycardia [Unknown]

NARRATIVE: CASE EVENT DATE: 20200718
